FAERS Safety Report 16636373 (Version 1)
Quarter: 2019Q3

REPORT INFORMATION
  Report Type: Spontaneous
  Country: US (occurrence: US)
  Receive Date: 20190726
  Receipt Date: 20190726
  Transmission Date: 20191004
  Serious: No
  Sender: FDA-Public Use
  Company Number: US-JNJFOC-20190708048

PATIENT
  Sex: Male
  Weight: 99.88 kg

DRUGS (2)
  1. DURAGESIC [Suspect]
     Active Substance: FENTANYL
     Indication: BRACHIAL PLEXUS INJURY
     Route: 062
     Dates: start: 1998, end: 201903
  2. DURAGESIC [Suspect]
     Active Substance: FENTANYL
     Route: 062
     Dates: start: 201903, end: 201903

REACTIONS (7)
  - Off label use [Unknown]
  - Incorrect product administration duration [Unknown]
  - Product use in unapproved indication [Unknown]
  - Feeling abnormal [Unknown]
  - Malaise [Unknown]
  - Product administration error [Unknown]
  - Hypersensitivity [Unknown]

NARRATIVE: CASE EVENT DATE: 1998
